FAERS Safety Report 14298185 (Version 1)
Quarter: 2017Q4

REPORT INFORMATION
  Report Type: Spontaneous
  Country: US (occurrence: US)
  Receive Date: 20171218
  Receipt Date: 20171218
  Transmission Date: 20180321
  Serious: No
  Sender: FDA-Public Use
  Company Number: US-BTG INTERNATIONAL, LTD.-2017BTG01302

PATIENT
  Age: 64 Year
  Sex: Male

DRUGS (8)
  1. LIDOCAINE. [Concomitant]
     Active Substance: LIDOCAINE
     Indication: PAIN
     Dosage: 12 ML, UNK
     Dates: start: 20170615, end: 20170615
  2. VARITHENA [Suspect]
     Active Substance: POLIDOCANOL
     Indication: VARICOSE VEIN
     Dosage: 12 ML, UNK
     Dates: start: 20170615, end: 20170615
  3. ASPIRIN. [Concomitant]
     Active Substance: ASPIRIN
     Indication: PRODUCT USED FOR UNKNOWN INDICATION
     Dosage: 81 MG, QD
     Route: 048
  4. VARITHENA [Suspect]
     Active Substance: POLIDOCANOL
     Indication: PERIPHERAL VENOUS DISEASE
     Dosage: UNK
     Dates: start: 20170706, end: 20170706
  5. LIDOCAINE. [Concomitant]
     Active Substance: LIDOCAINE
     Dosage: UNK
     Dates: start: 20170706, end: 20170706
  6. LEVOTHYROXINE SODIUM. [Concomitant]
     Active Substance: LEVOTHYROXINE SODIUM
     Indication: PRODUCT USED FOR UNKNOWN INDICATION
     Dosage: 50 ?G, QD
     Route: 048
  7. CARVEDILOL. [Concomitant]
     Active Substance: CARVEDILOL
     Indication: PRODUCT USED FOR UNKNOWN INDICATION
     Dosage: 25 MG, BID
     Route: 048
  8. ATORVASTATIN CALCIUM. [Concomitant]
     Active Substance: ATORVASTATIN CALCIUM
     Indication: PRODUCT USED FOR UNKNOWN INDICATION
     Dosage: 10 MG, QD
     Route: 048

REACTIONS (3)
  - Product quality issue [Unknown]
  - Intercepted medication error [Unknown]
  - Drug effect incomplete [Unknown]

NARRATIVE: CASE EVENT DATE: 20170615
